FAERS Safety Report 23547484 (Version 2)
Quarter: 2024Q1

REPORT INFORMATION
  Report Type: Report from Study
  Country: US (occurrence: US)
  Receive Date: 20240221
  Receipt Date: 20240320
  Transmission Date: 20240410
  Serious: Yes (Hospitalization)
  Sender: FDA-Public Use
  Company Number: US-AMX-006963

PATIENT
  Age: 69 Year
  Sex: Male

DRUGS (10)
  1. RELYVRIO [Suspect]
     Active Substance: SODIUM PHENYLBUTYRATE\TAURURSODIOL
     Indication: Amyotrophic lateral sclerosis
     Dosage: 1 SACHET ONCE DAILY FOR 3WKS, THEN 1 SACHET TWICE DAILY.
     Route: 048
     Dates: start: 20231130
  2. RADICAVA ORS [Suspect]
     Active Substance: EDARAVONE
     Indication: Product used for unknown indication
     Dosage: DOSAGE: 105 MG/5ML
     Route: 048
  3. RADICAVA ORS [Suspect]
     Active Substance: EDARAVONE
     Indication: Product used for unknown indication
     Dosage: DOSAGE: 30 MG/100ML
     Route: 065
  4. AMLODIPINE BESYLATE [Concomitant]
     Active Substance: AMLODIPINE BESYLATE
     Indication: Product used for unknown indication
     Route: 065
  5. Quinine sulfate 324mg capsule [Concomitant]
     Indication: Product used for unknown indication
     Route: 065
  6. Ipratropium -Albuterol [Concomitant]
     Indication: Product used for unknown indication
     Route: 065
  7. Alprazolam 0.5mg tablet [Concomitant]
     Indication: Product used for unknown indication
     Route: 065
  8. Wixela inhub 250-50 BLST W/DEV [Concomitant]
     Indication: Product used for unknown indication
     Route: 065
  9. Wixela inhub 250-50 BLST W/DEV [Concomitant]
     Indication: Product used for unknown indication
     Dosage: 250-50 MCG BLST W/DEV
     Route: 065
  10. Advair diskus 250-50 mcg BLST W/DEV [Concomitant]
     Indication: Product used for unknown indication
     Dosage: 250-50 MCG BLST W/DEV
     Route: 065

REACTIONS (6)
  - Dyspnoea [Recovering/Resolving]
  - Pruritus [Unknown]
  - Rash [Not Recovered/Not Resolved]
  - Abdominal discomfort [Unknown]
  - General physical health deterioration [Unknown]
  - Gastrointestinal disorder [Unknown]
